FAERS Safety Report 12485701 (Version 2)
Quarter: 2016Q3

REPORT INFORMATION
  Report Type: Spontaneous
  Country: JP (occurrence: JP)
  Receive Date: 20160621
  Receipt Date: 20160711
  Transmission Date: 20161109
  Serious: Yes (Other)
  Sender: FDA-Public Use
  Company Number: JP-JNJFOC-20160618081

PATIENT

DRUGS (2)
  1. RISPERDAL [Suspect]
     Active Substance: RISPERIDONE
     Indication: SCHIZOPHRENIA
     Dosage: THE PATIENT HAD BEEN TAKING RISPERIDONE FOR A LONG TIME
     Route: 048
  2. VEGETAMIN B [Suspect]
     Active Substance: CHLORPROMAZINE HYDROCHLORIDE\PHENOBARBITAL\PROMETHAZINE
     Indication: PRODUCT USED FOR UNKNOWN INDICATION
     Dosage: 1 DF, INITIATED BEFORE THE START OF RISPERIDONE
     Route: 048

REACTIONS (2)
  - Thirst [Not Recovered/Not Resolved]
  - Blood sodium decreased [Unknown]
